FAERS Safety Report 5221090-2 (Version None)
Quarter: 2007Q1

REPORT INFORMATION
  Report Type: 
  Country: None (occurrence: None)
  Receive Date: 20070126
  Receipt Date: 20070119
  Transmission Date: 20070707
  Serious: Yes (Other)
  Sender: FDA-Public Use
  Company Number: 2007PK00119

PATIENT
  Age: 82 Year
  Sex: Female
  Weight: 60 kg

DRUGS (1)
  1. SEROQUEL [Suspect]
     Indication: DEMENTIA
     Route: 048

REACTIONS (2)
  - AMIMIA [None]
  - DYSKINESIA [None]
